FAERS Safety Report 4617991-6 (Version None)
Quarter: 2005Q1

REPORT INFORMATION
  Report Type: 
  Country: None (occurrence: None)
  Receive Date: 20050322
  Receipt Date: 20050308
  Transmission Date: 20050727
  Serious: No
  Sender: FDA-Public Use
  Company Number: 2004SE07205

PATIENT
  Age: 33 Year
  Sex: Female

DRUGS (2)
  1. SEROQUEL [Suspect]
     Dosage: 25 MG DAILY PO
     Route: 048
     Dates: start: 20041021, end: 20041205
  2. LITAREX [Concomitant]

REACTIONS (4)
  - STRABISMUS [None]
  - TUNNEL VISION [None]
  - VISUAL DISTURBANCE [None]
  - VISUAL FIELD DEFECT [None]
